FAERS Safety Report 9203921 (Version 1)
Quarter: 2013Q1

REPORT INFORMATION
  Report Type: Spontaneous
  Country: US (occurrence: None)
  Receive Date: 20120709
  Receipt Date: 20120709
  Transmission Date: 20140127
  Serious: Yes (Other)
  Sender: FDA-Public Use
  Company Number: CPI 3266

PATIENT
  Age: 40 Year
  Sex: Female
  Weight: 68.04 kg

DRUGS (2)
  1. CALDOLOR [Suspect]
     Indication: PROCEDURAL PAIN
     Route: 042
     Dates: start: 20120329, end: 20120329
  2. LEVOTHYROXINE [Concomitant]

REACTIONS (3)
  - Anaphylactic reaction [None]
  - Stridor [None]
  - Rash [None]
